FAERS Safety Report 25860396 (Version 3)
Quarter: 2025Q4

REPORT INFORMATION
  Report Type: Report from Study
  Country: CA (occurrence: CA)
  Receive Date: 20250929
  Receipt Date: 20251108
  Transmission Date: 20260117
  Serious: Yes (Other)
  Sender: TAKEDA
  Company Number: CA-TAKEDA-2023TUS100781

PATIENT
  Age: 72 Year
  Sex: Male

DRUGS (10)
  1. HUMAN IMMUNOGLOBULIN G [Suspect]
     Active Substance: HUMAN IMMUNOGLOBULIN G
     Indication: Secondary immunodeficiency
     Dosage: 12 GRAM, 1/WEEK
     Dates: start: 20231013
  2. HUMAN IMMUNOGLOBULIN G [Suspect]
     Active Substance: HUMAN IMMUNOGLOBULIN G
     Dosage: 12 GRAM, 1/WEEK
  3. HUMAN IMMUNOGLOBULIN G [Suspect]
     Active Substance: HUMAN IMMUNOGLOBULIN G
     Dosage: 12 GRAM, 1/WEEK
  4. HUMAN IMMUNOGLOBULIN G [Suspect]
     Active Substance: HUMAN IMMUNOGLOBULIN G
     Dosage: 12 GRAM, 1/WEEK
  5. HUMAN IMMUNOGLOBULIN G [Suspect]
     Active Substance: HUMAN IMMUNOGLOBULIN G
     Dosage: 14 GRAM, 1/WEEK
  6. HYQVIA [Interacting]
     Active Substance: HUMAN IMMUNOGLOBULIN G\HYALURONIDASE (HUMAN RECOMBINANT)
     Indication: Secondary immunodeficiency
     Dosage: 50 GRAM, Q4WEEKS
     Dates: start: 20241114
  7. HYQVIA [Interacting]
     Active Substance: HUMAN IMMUNOGLOBULIN G\HYALURONIDASE (HUMAN RECOMBINANT)
     Dosage: 50 GRAM, Q4WEEKS
  8. HYQVIA [Interacting]
     Active Substance: HUMAN IMMUNOGLOBULIN G\HYALURONIDASE (HUMAN RECOMBINANT)
     Dosage: 50 GRAM, Q4WEEKS
  9. HYQVIA [Interacting]
     Active Substance: HUMAN IMMUNOGLOBULIN G\HYALURONIDASE (HUMAN RECOMBINANT)
     Dosage: 50 GRAM, Q4WEEKS
  10. HYQVIA [Interacting]
     Active Substance: HUMAN IMMUNOGLOBULIN G\HYALURONIDASE (HUMAN RECOMBINANT)
     Dosage: 50 GRAM, Q4WEEKS

REACTIONS (19)
  - Skin cancer [Recovering/Resolving]
  - Blood immunoglobulin G decreased [Unknown]
  - Inappropriate schedule of product administration [Unknown]
  - Incorrect dose administered [Unknown]
  - Injection site discharge [Unknown]
  - Drug interaction [Recovering/Resolving]
  - Circumstance or information capable of leading to medication error [Unknown]
  - Product solubility abnormal [Unknown]
  - Infusion related reaction [Unknown]
  - Gastrointestinal disorder [Unknown]
  - Dehydration [Unknown]
  - Blood pressure increased [Unknown]
  - Infusion site erythema [Recovering/Resolving]
  - Infusion site swelling [Recovering/Resolving]
  - Flushing [Recovering/Resolving]
  - Infusion site warmth [Recovering/Resolving]
  - Nausea [Unknown]
  - Diarrhoea [Unknown]
  - Infusion site reaction [Unknown]

NARRATIVE: CASE EVENT DATE: 20250901
